FAERS Safety Report 4297529-6 (Version None)
Quarter: 2004Q1

REPORT INFORMATION
  Report Type: 
  Country: None (occurrence: None)
  Receive Date: 20040126
  Receipt Date: 20031031
  Transmission Date: 20041129
  Serious: No
  Sender: FDA-Public Use
  Company Number: USA031151385

PATIENT
  Age: 8 Year
  Sex: Male
  Weight: 24 kg

DRUGS (1)
  1. STRATTERA [Suspect]
     Indication: ATTENTION DEFICIT/HYPERACTIVITY DISORDER
     Dosage: 35 MG/DAY
     Dates: start: 20031025

REACTIONS (6)
  - ABDOMINAL PAIN [None]
  - INSOMNIA [None]
  - IRRITABILITY [None]
  - NAUSEA [None]
  - POLLAKIURIA [None]
  - SOMNOLENCE [None]
